FAERS Safety Report 7751057-1 (Version None)
Quarter: 2011Q3

REPORT INFORMATION
  Report Type: 
  Country: None (occurrence: None)
  Receive Date: 20110914
  Receipt Date: 20101130
  Transmission Date: 20111222
  Serious: No
  Sender: FDA-Public Use
  Company Number: US-MYLANLABS-2010S1022048

PATIENT
  Age: 33 Year
  Sex: Female

DRUGS (1)
  1. SPIRONOLACTONE [Suspect]
     Indication: ACNE
     Route: 048
     Dates: start: 20101105, end: 20101127

REACTIONS (4)
  - NAUSEA [None]
  - DISTRACTIBILITY [None]
  - MENSTRUATION DELAYED [None]
  - DIZZINESS [None]
